FAERS Safety Report 18140102 (Version 1)
Quarter: 2020Q3

REPORT INFORMATION
  Report Type: Spontaneous
  Country: US (occurrence: US)
  Receive Date: 20200812
  Receipt Date: 20200812
  Transmission Date: 20201103
  Serious: Yes (Hospitalization)
  Sender: FDA-Public Use
  Company Number: US-TEVA-2020-US-1812665

PATIENT
  Age: 55 Year
  Sex: Male

DRUGS (5)
  1. SILDENAFIL. [Suspect]
     Active Substance: SILDENAFIL
     Indication: CARDIAC OUTPUT DECREASED
     Dosage: 60 MILLIGRAM DAILY; THREE TIMES DAILY
     Route: 065
  2. MILRINONE [Suspect]
     Active Substance: MILRINONE
     Indication: CARDIAC OUTPUT DECREASED
     Route: 065
  3. EPOPROSTENOL. [Suspect]
     Active Substance: EPOPROSTENOL
     Indication: CARDIAC OUTPUT DECREASED
     Route: 055
  4. EPOPROSTENOL. [Suspect]
     Active Substance: EPOPROSTENOL
     Indication: CARDIAC OUTPUT DECREASED
     Route: 051
  5. MACITENTAN [Suspect]
     Active Substance: MACITENTAN
     Indication: CARDIAC OUTPUT DECREASED
     Dosage: 10 MILLIGRAM DAILY;
     Route: 065

REACTIONS (1)
  - Pulmonary veno-occlusive disease [Not Recovered/Not Resolved]
